FAERS Safety Report 22970739 (Version 2)
Quarter: 2023Q4

REPORT INFORMATION
  Report Type: Spontaneous
  Country: CO (occurrence: CO)
  Receive Date: 20230922
  Receipt Date: 20231016
  Transmission Date: 20240109
  Serious: Yes (Other)
  Sender: FDA-Public Use
  Company Number: CO-BAYER-2023A133164

PATIENT
  Sex: Female

DRUGS (2)
  1. EYLEA [Suspect]
     Active Substance: AFLIBERCEPT
     Indication: Diabetic retinal oedema
     Dosage: 2 MG, MONTHLY FOR 5 MONTHS, THEN EVERY 2 MONTHS THEREAFTER,STRENGTH: 40 MG/ML SOLUTION FOR INJECTION
     Route: 031
     Dates: start: 202304, end: 202304
  2. EYLEA [Suspect]
     Active Substance: AFLIBERCEPT
     Dosage: 2 MG, MONTHLY FOR 5 MONTHS, THEN EVERY 2 MONTHS THEREAFTER,STRENGTH: 40 MG/ML SOLUTION FOR INJECTION
     Route: 031
     Dates: start: 20230929

REACTIONS (4)
  - Blindness unilateral [Unknown]
  - Eye operation [Unknown]
  - Retinal detachment [Unknown]
  - Inappropriate schedule of product administration [Unknown]

NARRATIVE: CASE EVENT DATE: 20230401
